FAERS Safety Report 6079137-X (Version None)
Quarter: 2009Q1

REPORT INFORMATION
  Report Type: 
  Country: None (occurrence: None)
  Receive Date: 20090216
  Receipt Date: 20090209
  Transmission Date: 20090719
  Serious: Yes (Death, Hospitalization)
  Sender: FDA-Public Use
  Company Number: A0765302A

PATIENT
  Age: 64 Year
  Sex: Male

DRUGS (5)
  1. ADVAIR DISKUS 100/50 [Suspect]
     Indication: CHRONIC OBSTRUCTIVE PULMONARY DISEASE
     Route: 055
  2. ANESTHESIA [Suspect]
  3. MAXAIR [Concomitant]
  4. PROTONIX [Concomitant]
  5. BLOOD PRESSURE MEDICATION [Concomitant]

REACTIONS (6)
  - DEATH [None]
  - DYSPNOEA [None]
  - FALL [None]
  - FEMUR FRACTURE [None]
  - HAND FRACTURE [None]
  - POST PROCEDURAL COMPLICATION [None]
